FAERS Safety Report 8102865-9 (Version None)
Quarter: 2012Q1

REPORT INFORMATION
  Report Type: 
  Country: None (occurrence: None)
  Receive Date: 20120127
  Receipt Date: 20120111
  Transmission Date: 20120608
  Serious: Yes (Death)
  Sender: FDA-Public Use
  Company Number: 062-50794-12011145

PATIENT
  Age: 71 Year
  Sex: Male
  Weight: 82 kg

DRUGS (9)
  1. PANTAZOL (PANTOPRAZOLE SODIUM) [Concomitant]
  2. PREDNISONE TAB [Concomitant]
  3. DIFLUCAN [Concomitant]
  4. VIDAZA [Suspect]
     Indication: MYELODYSPLASTIC SYNDROME
     Dosage: D 1-7, SC
     Route: 058
     Dates: start: 20110322, end: 20110716
  5. INSULIN (INSULIN) [Concomitant]
  6. METOPROLOL SUCCINATE [Concomitant]
  7. LEVOTHYROXINE SODIUM [Concomitant]
  8. TORSEMIDE [Concomitant]
  9. AUGMENTIN '125' [Concomitant]

REACTIONS (7)
  - HAEMOGLOBIN DECREASED [None]
  - WHITE BLOOD CELL COUNT DECREASED [None]
  - PLATELET COUNT DECREASED [None]
  - PNEUMONIA ESCHERICHIA [None]
  - STAPHYLOCOCCAL INFECTION [None]
  - ENTEROCOCCAL INFECTION [None]
  - NEUTROPENIC SEPSIS [None]
